FAERS Safety Report 16909370 (Version 2)
Quarter: 2019Q4

REPORT INFORMATION
  Report Type: Report from Study
  Country: US (occurrence: US)
  Receive Date: 20191011
  Receipt Date: 20191029
  Transmission Date: 20200122
  Serious: Yes (Other)
  Sender: FDA-Public Use
  Company Number: US-JNJFOC-20190825590

PATIENT
  Sex: Male

DRUGS (6)
  1. FLUOXETINE [Concomitant]
     Active Substance: FLUOXETINE HYDROCHLORIDE
  2. MULTIVITAMINS                      /00116001/ [Concomitant]
     Active Substance: VITAMINS
  3. LEVOTHYROXINE SODIUM. [Concomitant]
     Active Substance: LEVOTHYROXINE SODIUM
  4. IMBRUVICA [Suspect]
     Active Substance: IBRUTINIB
     Dosage: 420 MG, QD
     Route: 048
     Dates: start: 20190514
  5. ROXANOL [Concomitant]
     Active Substance: MORPHINE SULFATE
  6. IMBRUVICA [Suspect]
     Active Substance: IBRUTINIB
     Indication: CHRONIC LYMPHOCYTIC LEUKAEMIA
     Dosage: 420 MG, QD
     Route: 048
     Dates: start: 20190513

REACTIONS (8)
  - Haemorrhage [Unknown]
  - Contusion [Unknown]
  - Increased tendency to bruise [Unknown]
  - Basal cell carcinoma [Unknown]
  - Ulcer [Unknown]
  - Productive cough [Unknown]
  - Fatigue [Unknown]
  - Impaired healing [Unknown]

NARRATIVE: CASE EVENT DATE: 2019
